FAERS Safety Report 6436145-4 (Version None)
Quarter: 2009Q4

REPORT INFORMATION
  Report Type: 
  Country: None (occurrence: None)
  Receive Date: 20091111
  Receipt Date: 20091030
  Transmission Date: 20100525
  Serious: Yes (Death, Other)
  Sender: FDA-Public Use
  Company Number: BR-PFIZER INC-2009258611

PATIENT
  Age: 67 Year
  Sex: Male
  Weight: 80 kg

DRUGS (4)
  1. SUTENT [Suspect]
     Indication: GASTROINTESTINAL STROMAL TUMOUR
     Dosage: 50 MG, 1X/DAY
     Route: 048
     Dates: start: 20090619
  2. OMEPRAZOLE [Concomitant]
     Indication: GASTROOESOPHAGEAL REFLUX DISEASE
     Dosage: 20 MG, UNK
     Dates: start: 20060101
  3. DOXAZOSIN [Concomitant]
     Indication: PROSTATIC DISORDER
     Dosage: UNK
  4. PREDNISONE [Concomitant]
     Dosage: 5 MG, UNK
     Dates: start: 20090501

REACTIONS (6)
  - ANAEMIA [None]
  - BLISTER [None]
  - CHEST PAIN [None]
  - DEATH [None]
  - SKIN EXFOLIATION [None]
  - WEIGHT DECREASED [None]
